FAERS Safety Report 10418968 (Version 1)
Quarter: 2014Q2

REPORT INFORMATION
  Report Type: Report from Study
  Country: US (occurrence: None)
  Receive Date: 20140627
  Receipt Date: 20140627
  Transmission Date: 20141212
  Serious: No
  Sender: FDA-Public Use
  Company Number: CABO-14004324

PATIENT
  Age: 62 Year
  Sex: Male

DRUGS (15)
  1. COMETRIQ (CABOZANTINIB) CAPSULE [Suspect]
     Indication: MEDULLARY THYROID CANCER
     Route: 048
     Dates: start: 20140503, end: 20140519
  2. METFORMIN [Concomitant]
  3. METOPROLOL [Concomitant]
  4. DIGOXIN [Concomitant]
  5. RANITIDINE [Concomitant]
  6. ATORVASTATIN [Concomitant]
  7. ASPIRIN (ACETYLSALICYLIC ACID) [Concomitant]
  8. IBUPROFEN [Concomitant]
  9. VITAMIN D3 (COLECALCIFEROL) [Concomitant]
  10. VITAMIN B12 (COBAMAMIDE) [Concomitant]
  11. FISH OIL [Concomitant]
  12. NAPROXEN [Concomitant]
  13. TRAMADOL [Concomitant]
  14. LOMOTIL (ATROPINE SULFATE, DIPHENOXYLATE HYDROCHLORIDE) [Concomitant]
  15. PROCHLORPERAZINE [Concomitant]

REACTIONS (9)
  - Palpitations [None]
  - Dyspnoea [None]
  - Headache [None]
  - Nausea [None]
  - Hypertension [None]
  - Diarrhoea [None]
  - Dysgeusia [None]
  - Muscle spasms [None]
  - Abdominal pain upper [None]
